FAERS Safety Report 9714826 (Version 2)
Quarter: 2013Q4

REPORT INFORMATION
  Report Type: Spontaneous
  Country: JP (occurrence: None)
  Receive Date: 20131125
  Receipt Date: 20131216
  Transmission Date: 20140711
  Serious: Yes (Hospitalization)
  Sender: FDA-Public Use
  Company Number: JP-013731

PATIENT
  Age: 80 Year
  Sex: Male

DRUGS (8)
  1. DEGARELIX (GONAX) (240 MG, 80MG) [Suspect]
     Indication: PROSTATE CANCER
     Route: 058
     Dates: start: 20130318, end: 20130318
  2. HARNAL [Concomitant]
  3. PREDNISOLONE [Concomitant]
  4. GASTER /00706001/ [Concomitant]
  5. PRIMPERAN [Concomitant]
  6. BIO THREE /01960101/ [Concomitant]
  7. SENNOSIDE /00571901/ [Concomitant]
  8. TAXOTERE [Concomitant]

REACTIONS (3)
  - Injection site cellulitis [None]
  - Intentional drug misuse [None]
  - Pyrexia [None]
